FAERS Safety Report 9776697 (Version 1)
Quarter: 2013Q4

REPORT INFORMATION
  Report Type: Spontaneous
  Country: TR (occurrence: TR)
  Receive Date: 20131220
  Receipt Date: 20131220
  Transmission Date: 20140711
  Serious: Yes (Other)
  Sender: FDA-Public Use
  Company Number: PHHY2013TR146827

PATIENT
  Age: 43 Year
  Sex: Female

DRUGS (2)
  1. BUPROPION [Suspect]
     Indication: MAJOR DEPRESSION
     Dosage: 150 MG, PER DAY
  2. FLUOXETINE [Concomitant]
     Dosage: 80 MG, PER DAY

REACTIONS (2)
  - Disturbance in attention [Unknown]
  - Libido increased [Recovering/Resolving]
